FAERS Safety Report 6430033-5 (Version None)
Quarter: 2009Q4

REPORT INFORMATION
  Report Type: 
  Country: None (occurrence: None)
  Receive Date: 20091104
  Receipt Date: 20091104
  Transmission Date: 20100525
  Serious: Yes (Life-Threatening)
  Sender: FDA-Public Use
  Company Number: None

PATIENT
  Age: 20 Year
  Sex: Male
  Weight: 77.1115 kg

DRUGS (2)
  1. WELLBUTRIN [Suspect]
     Indication: ANXIETY
     Dosage: 150-300MG TWICE A DAY PO
     Route: 048
     Dates: start: 20090804, end: 20090904
  2. WELLBUTRIN [Suspect]
     Indication: DEPRESSION
     Dosage: 150-300MG TWICE A DAY PO
     Route: 048
     Dates: start: 20090804, end: 20090904

REACTIONS (4)
  - DRUG ABUSE [None]
  - HALLUCINATION [None]
  - MORBID THOUGHTS [None]
  - SUICIDE ATTEMPT [None]
